FAERS Safety Report 5331257-0 (Version None)
Quarter: 2007Q2

REPORT INFORMATION
  Report Type: 
  Country: None (occurrence: None)
  Receive Date: 20070301
  Receipt Date: 20060504
  Transmission Date: 20071010
  Serious: Yes (Hospitalization)
  Sender: FDA-Public Use
  Company Number: 2425

PATIENT

DRUGS (1)
  1. ISOTRETINOIN [Suspect]

REACTIONS (1)
  - MENTAL DISORDER [None]
